FAERS Safety Report 20163432 (Version 1)
Quarter: 2021Q4

REPORT INFORMATION
  Report Type: Other
  Country: US (occurrence: None)
  Receive Date: 20211209
  Receipt Date: 20211209
  Transmission Date: 20220303
  Serious: Yes (Other)
  Sender: FDA-Public Use
  Company Number: US-ROCHE-2971579

PATIENT
  Sex: Female

DRUGS (1)
  1. ROZLYTREK [Suspect]
     Active Substance: ENTRECTINIB
     Indication: Bronchial carcinoma
     Dosage: 2 CAPSULES DAILY.
     Route: 048

REACTIONS (1)
  - Clostridium difficile colitis [Unknown]
